FAERS Safety Report 25754809 (Version 3)
Quarter: 2025Q4

REPORT INFORMATION
  Report Type: Report from Study
  Country: CA (occurrence: CA)
  Receive Date: 20250903
  Receipt Date: 20251030
  Transmission Date: 20260118
  Serious: Yes (Other)
  Sender: Alvotech
  Company Number: CA-JAMP PHARMA CORPORATION-2023-JAM-CA-01083

PATIENT
  Age: 61 Year
  Sex: Female

DRUGS (4)
  1. SIMLANDI [Suspect]
     Active Substance: ADALIMUMAB-RYVK
     Indication: Psoriasis
     Dosage: 40 MILLIGRAM, EVERY WEEK
     Route: 058
  2. SIMLANDI [Suspect]
     Active Substance: ADALIMUMAB-RYVK
     Indication: Psoriasis
     Dosage: 40 MILLIGRAM, EVERY 2 WEEKS
     Route: 058
     Dates: start: 20250731
  3. SIMLANDI [Suspect]
     Active Substance: ADALIMUMAB-RYVK
     Indication: Psoriasis
     Dosage: 80 MG INDUCTION
     Route: 058
  4. SIMLANDI [Suspect]
     Active Substance: ADALIMUMAB-RYVK
     Indication: Psoriasis
     Dosage: 40 MILLIGRAM, EVERY 2 WEEKS
     Route: 058
     Dates: start: 2023, end: 202502

REACTIONS (9)
  - Gastric ulcer [Unknown]
  - Mass [Unknown]
  - Blood cholesterol increased [Unknown]
  - Pain in extremity [Unknown]
  - Arthritis [Unknown]
  - Pruritus [Unknown]
  - Product dose omission issue [Unknown]
  - Product dispensing error [Unknown]
  - Off label use [Unknown]

NARRATIVE: CASE EVENT DATE: 20230706
